FAERS Safety Report 6989184-9 (Version None)
Quarter: 2010Q3

REPORT INFORMATION
  Report Type: 
  Country: None (occurrence: None)
  Receive Date: 20100916
  Receipt Date: 20091001
  Transmission Date: 20110219
  Serious: Yes (Other)
  Sender: FDA-Public Use
  Company Number: US-PFIZER INC-2009265351

PATIENT
  Sex: Female
  Weight: 63.492 kg

DRUGS (5)
  1. LYRICA [Suspect]
     Indication: FIBROMYALGIA
     Dosage: UNK
     Route: 048
     Dates: start: 20090501
  2. NORTRIPTYLINE HCL [Concomitant]
     Indication: SLEEP DISORDER
     Dosage: 10 MG, 1X/DAY
     Route: 048
  3. LOESTRIN 1.5/30 [Concomitant]
     Indication: CONTRACEPTION
     Dosage: UNK
     Route: 048
  4. AMBIEN [Concomitant]
     Dosage: 5 MG, AS NEEDED
  5. IBUPROFEN [Concomitant]
     Dosage: 600 MG, AS NEEDED
     Route: 048

REACTIONS (4)
  - COUGH [None]
  - CYSTITIS INTERSTITIAL [None]
  - HYPERTONIC BLADDER [None]
  - MUSCLE SPASMS [None]
